FAERS Safety Report 8131979-2 (Version None)
Quarter: 2012Q1

REPORT INFORMATION
  Report Type: 
  Country: None (occurrence: None)
  Receive Date: 20120207
  Receipt Date: 20120123
  Transmission Date: 20120608
  Serious: Yes (Death)
  Sender: FDA-Public Use
  Company Number: 2012SGN00015

PATIENT
  Age: 21 Year
  Sex: Male

DRUGS (1)
  1. ADCETRIS [Suspect]
     Indication: HODGKIN'S DISEASE
     Dosage: 1.8 MG/KG, Q21D
     Dates: start: 20110101, end: 20111201

REACTIONS (4)
  - PULMONARY TOXICITY [None]
  - NEOPLASM PROGRESSION [None]
  - RESPIRATORY FAILURE [None]
  - HODGKIN'S DISEASE [None]
